FAERS Safety Report 10243312 (Version 1)
Quarter: 2014Q2

REPORT INFORMATION
  Report Type: Spontaneous
  Country: CH (occurrence: CH)
  Receive Date: 20140618
  Receipt Date: 20140618
  Transmission Date: 20141212
  Serious: Yes (Hospitalization)
  Sender: FDA-Public Use
  Company Number: PHHY2014CH073504

PATIENT
  Age: 79 Year
  Sex: Female

DRUGS (12)
  1. EXELON PATCH [Suspect]
     Indication: DEMENTIA
     Dosage: 5 MG, QD
     Route: 062
  2. COMTAN [Suspect]
     Indication: PARKINSON^S DISEASE
     Dosage: 200 MG, BID
     Route: 048
     Dates: start: 20140215, end: 201402
  3. LEPONEX [Suspect]
     Dosage: 25 MG, QD
     Route: 048
  4. QUILONORM//LITHIUM CARBONATE [Suspect]
     Indication: DEPRESSION
     Dosage: 450 MG, QD
     Route: 048
     Dates: end: 20140217
  5. REQUIP [Suspect]
     Indication: PARKINSON^S DISEASE
     Dosage: 8 MG, QD
     Route: 048
     Dates: end: 201402
  6. MADOPAR 62.5 [Suspect]
     Indication: PARKINSON^S DISEASE
     Dosage: 1 DF, QD
     Route: 048
     Dates: start: 20140215
  7. TIAPRIDE HYDROCHLORIDE [Suspect]
     Dosage: 100 MG, TID
     Route: 048
     Dates: end: 20140217
  8. SINEMET [Concomitant]
     Dosage: UNK UKN, UNK
  9. ESOMEP//ESOMEPRAZOLE [Concomitant]
     Dosage: UNK UKN, UNK
  10. SPASMO URGENIN [Concomitant]
     Dosage: UNK UKN, UNK
  11. MOVICOL [Concomitant]
     Dosage: UNK UKN, UNK
  12. NITRODERM [Concomitant]
     Dosage: UNK UKN, UNK

REACTIONS (7)
  - Disorientation [Recovered/Resolved]
  - Labelled drug-disease interaction medication error [Unknown]
  - Antipsychotic drug level above therapeutic [Recovered/Resolved]
  - Confusional state [Recovered/Resolved]
  - Hallucination [Recovered/Resolved]
  - Delirium [Recovered/Resolved]
  - Agitation [Recovered/Resolved]
